FAERS Safety Report 10444929 (Version 1)
Quarter: 2014Q3

REPORT INFORMATION
  Report Type: Spontaneous
  Country: IT (occurrence: IT)
  Receive Date: 20140910
  Receipt Date: 20140910
  Transmission Date: 20150326
  Serious: Yes (Hospitalization)
  Sender: FDA-Public Use
  Company Number: PHHY2014IT112618

PATIENT
  Age: 18 Year
  Sex: Female

DRUGS (2)
  1. DINTOINA [Suspect]
     Active Substance: PHENYTOIN SODIUM
     Dosage: 2 DF (100 MG TABLET), UNK
     Route: 048
     Dates: start: 20140602, end: 20140602
  2. TEGRETOL [Suspect]
     Active Substance: CARBAMAZEPINE
     Dosage: 3 DF(200MG TABLET), UNK
     Route: 048
     Dates: start: 20140602, end: 20140602

REACTIONS (2)
  - Somnolence [Recovering/Resolving]
  - Medication error [Recovering/Resolving]

NARRATIVE: CASE EVENT DATE: 20140602
